FAERS Safety Report 5286447-2 (Version None)
Quarter: 2007Q2

REPORT INFORMATION
  Report Type: 
  Country: None (occurrence: None)
  Receive Date: 20070404
  Receipt Date: 20070330
  Transmission Date: 20071010
  Serious: No
  Sender: FDA-Public Use
  Company Number: 2006UW10942

PATIENT
  Sex: Female
  Weight: 118.2 kg

DRUGS (4)
  1. SEROQUEL [Suspect]
     Indication: MENTAL DISORDER
     Route: 048
     Dates: start: 19970101, end: 20000101
  2. HALDOL [Concomitant]
     Dates: start: 19970101, end: 19980101
  3. RISPERDAL [Concomitant]
     Dates: start: 19950101, end: 20000101
  4. ZYPREXA [Concomitant]
     Dates: start: 19990101

REACTIONS (1)
  - DIABETES MELLITUS [None]
